FAERS Safety Report 22029791 (Version 1)
Quarter: 2023Q1

REPORT INFORMATION
  Report Type: Report from Study
  Country: US (occurrence: US)
  Receive Date: 20230223
  Receipt Date: 20230223
  Transmission Date: 20230417
  Serious: Yes (Other)
  Sender: FDA-Public Use
  Company Number: US-BAYER-2022A173234

PATIENT
  Age: 68 Year
  Sex: Male

DRUGS (2)
  1. NUBEQA [Suspect]
     Active Substance: DAROLUTAMIDE
     Indication: Hormone-refractory prostate cancer
     Dosage: 600 MG, BID
     Route: 048
     Dates: start: 20221212
  2. FIRMAGON [Concomitant]
     Active Substance: DEGARELIX ACETATE
     Indication: Prostate cancer

REACTIONS (13)
  - Neuropathy peripheral [None]
  - Hallucination [None]
  - Hot flush [Not Recovered/Not Resolved]
  - Fatigue [Not Recovered/Not Resolved]
  - Paraesthesia [None]
  - Stomatitis [None]
  - Chills [None]
  - Diarrhoea [None]
  - Feeling abnormal [None]
  - Decreased appetite [None]
  - Nausea [None]
  - Haemorrhoids [None]
  - Alopecia [None]

NARRATIVE: CASE EVENT DATE: 20221212
